FAERS Safety Report 5579884-X (Version None)
Quarter: 2008Q1

REPORT INFORMATION
  Report Type: 
  Country: None (occurrence: None)
  Receive Date: 20080102
  Receipt Date: 20071226
  Transmission Date: 20080703
  Serious: Yes (Other)
  Sender: FDA-Public Use
  Company Number: BR-PFIZER INC-2007108169

PATIENT
  Sex: Female

DRUGS (2)
  1. DEPO-PROVERA SUSPENSION/INJ [Suspect]
     Route: 030
     Dates: start: 20061201, end: 20061201
  2. DEPO-PROVERA SUSPENSION/INJ [Suspect]
     Route: 030
     Dates: start: 20071029, end: 20071029

REACTIONS (3)
  - AMENORRHOEA [None]
  - ANXIETY [None]
  - DEPRESSION [None]
